FAERS Safety Report 8554846-9 (Version None)
Quarter: 2012Q3

REPORT INFORMATION
  Report Type: 
  Country: None (occurrence: None)
  Receive Date: 20120731
  Receipt Date: 20120709
  Transmission Date: 20120928
  Serious: No
  Sender: FDA-Public Use
  Company Number: US-ASTRAZENECA-2012SE46946

PATIENT
  Age: 30 Year
  Sex: Male
  Weight: 110.7 kg

DRUGS (2)
  1. MOTRIN [Concomitant]
     Indication: CHEST PAIN
  2. OMEPRAZOLE [Suspect]
     Indication: GASTROINTESTINAL DISORDER
     Route: 048
     Dates: start: 20120301

REACTIONS (5)
  - DYSPNOEA [None]
  - CHEST PAIN [None]
  - OFF LABEL USE [None]
  - DIZZINESS [None]
  - HEART RATE IRREGULAR [None]
